FAERS Safety Report 11938290 (Version 1)
Quarter: 2016Q1

REPORT INFORMATION
  Report Type: Other
  Country: US (occurrence: US)
  Receive Date: 20160122
  Receipt Date: 20160122
  Transmission Date: 20160526
  Serious: Yes (Death, Other)
  Sender: FDA-Public Use
  Company Number: US-HETERO LABS LTD-1046760

PATIENT
  Sex: Male

DRUGS (5)
  1. ETHAMBUTOL [Concomitant]
     Active Substance: ETHAMBUTOL HYDROCHLORIDE
  2. RIFAMPICIN [Concomitant]
     Active Substance: RIFAMPIN
  3. LEVOFLOXACIN. [Suspect]
     Active Substance: LEVOFLOXACIN
     Indication: PRODUCT USED FOR UNKNOWN INDICATION
  4. ISONIAZID. [Concomitant]
     Active Substance: ISONIAZID
  5. RIFABUTIN. [Concomitant]
     Active Substance: RIFABUTIN

REACTIONS (3)
  - Acute hepatic failure [Fatal]
  - Acute kidney injury [Fatal]
  - Intra-abdominal haemorrhage [Fatal]
